FAERS Safety Report 17510063 (Version 1)
Quarter: 2020Q1

REPORT INFORMATION
  Report Type: Spontaneous
  Country: US (occurrence: US)
  Receive Date: 20200306
  Receipt Date: 20200306
  Transmission Date: 20200409
  Serious: No
  Sender: FDA-Public Use
  Company Number: None

PATIENT
  Age: 52 Year
  Sex: Female
  Weight: 48.15 kg

DRUGS (12)
  1. CALCIUM-MG-ZINC [Concomitant]
  2. PREDNISONE. [Concomitant]
     Active Substance: PREDNISONE
  3. IBUPROFEN. [Concomitant]
     Active Substance: IBUPROFEN
  4. VITAMIN C [Concomitant]
     Active Substance: ASCORBIC ACID
  5. VITAMIN E [Concomitant]
     Active Substance: .ALPHA.-TOCOPHEROL
  6. MEKTOVI [Suspect]
     Active Substance: BINIMETINIB
     Indication: NEOPLASM
     Dosage: ?          OTHER FREQUENCY:30MG AM, 15MG PM;?
     Route: 048
     Dates: start: 20200210, end: 20200306
  7. VITAMIN B12 [Concomitant]
     Active Substance: CYANOCOBALAMIN
  8. TYLENOL [Concomitant]
     Active Substance: ACETAMINOPHEN
  9. BRAFTOVI [Suspect]
     Active Substance: ENCORAFENIB
     Indication: NEOPLASM
     Route: 048
     Dates: start: 20200210, end: 20200306
  10. ESTRADIOL CREAM [Concomitant]
     Active Substance: ESTRADIOL HEMIHYDRATE
  11. MVI [Concomitant]
     Active Substance: VITAMINS
  12. VIT D [Concomitant]
     Active Substance: VITAMIN D NOS

REACTIONS (1)
  - Drug intolerance [None]

NARRATIVE: CASE EVENT DATE: 20200306
